FAERS Safety Report 5444109-2 (Version None)
Quarter: 2007Q3

REPORT INFORMATION
  Report Type: 
  Country: None (occurrence: None)
  Receive Date: 20070831
  Receipt Date: 20070817
  Transmission Date: 20080115
  Serious: Yes (Disabling)
  Sender: FDA-Public Use
  Company Number: S06-CAN-01222-01

PATIENT
  Age: 50 Year
  Sex: Male

DRUGS (2)
  1. TIAZAC [Suspect]
     Indication: ATRIAL FIBRILLATION
  2. WARFARIN SODIUM [Concomitant]

REACTIONS (1)
  - NECK PAIN [None]
